FAERS Safety Report 18302561 (Version 2)
Quarter: 2020Q4

REPORT INFORMATION
  Report Type: Spontaneous
  Country: US (occurrence: US)
  Receive Date: 20200923
  Receipt Date: 20201027
  Transmission Date: 20210113
  Serious: Yes (Other)
  Sender: FDA-Public Use
  Company Number: US-GW PHARMA-202009USGW03170

PATIENT

DRUGS (8)
  1. LANSOPRAZOLE. [Concomitant]
     Active Substance: LANSOPRAZOLE
     Indication: PRODUCT USED FOR UNKNOWN INDICATION
     Dosage: UNK
     Route: 065
  2. EPIDIOLEX [Suspect]
     Active Substance: CANNABIDIOL
     Indication: PARTIAL SEIZURES
     Dosage: 100 MILLIGRAM, BID
     Dates: start: 20191001
  3. ACETAMINOPHEN. [Concomitant]
     Active Substance: ACETAMINOPHEN
     Indication: PRODUCT USED FOR UNKNOWN INDICATION
     Dosage: UNK
     Route: 065
  4. ONFI [Concomitant]
     Active Substance: CLOBAZAM
     Indication: PRODUCT USED FOR UNKNOWN INDICATION
     Dosage: UNK
     Route: 065
  5. EPIDIOLEX [Suspect]
     Active Substance: CANNABIDIOL
     Indication: FOCAL DYSCOGNITIVE SEIZURES
  6. BACLOFEN. [Suspect]
     Active Substance: BACLOFEN
     Indication: PRODUCT USED FOR UNKNOWN INDICATION
     Dosage: UNK, DRUG WITHDRAWN
     Route: 065
     Dates: end: 2020
  7. DULCOLAX (BISACODYL) [Concomitant]
     Active Substance: BISACODYL
     Indication: PRODUCT USED FOR UNKNOWN INDICATION
     Dosage: UNK
     Route: 065
  8. EPIDIOLEX [Suspect]
     Active Substance: CANNABIDIOL
     Indication: EPILEPSY

REACTIONS (5)
  - Product use in unapproved indication [Unknown]
  - Product dose omission issue [Unknown]
  - Drug withdrawal convulsions [Recovering/Resolving]
  - Incorrect dose administered [Unknown]
  - Seizure [Recovering/Resolving]

NARRATIVE: CASE EVENT DATE: 202009
